FAERS Safety Report 7141074-7 (Version None)
Quarter: 2010Q4

REPORT INFORMATION
  Report Type: 
  Country: None (occurrence: None)
  Receive Date: 20101122
  Receipt Date: 20101110
  Transmission Date: 20110411
  Serious: Yes (Death, Hospitalization, Other)
  Sender: FDA-Public Use
  Company Number: MC201000227

PATIENT
  Age: 69 Year
  Sex: Male
  Weight: 87 kg

DRUGS (5)
  1. ANGIOMAX [Suspect]
     Indication: PERCUTANEOUS CORONARY INTERVENTION
     Dosage: 13.5 ML, BOLUS, INTRAVENOUS
     Route: 040
     Dates: start: 20100409, end: 20100409
  2. ASPIRIN [Concomitant]
  3. CLOPIDOGREL [Concomitant]
  4. HEPARIN [Concomitant]
  5. INSULIN [Concomitant]

REACTIONS (4)
  - NOSOCOMIAL INFECTION [None]
  - PNEUMONIA [None]
  - RESPIRATORY FAILURE [None]
  - THROMBOSIS IN DEVICE [None]
